FAERS Safety Report 24321257 (Version 1)
Quarter: 2024Q3

REPORT INFORMATION
  Report Type: Report from Study
  Country: MX (occurrence: MX)
  Receive Date: 20240916
  Receipt Date: 20240916
  Transmission Date: 20241017
  Serious: Yes (Hospitalization)
  Sender: EMD SERONO INC
  Company Number: MX-Merck Healthcare KGaA-2024048763

PATIENT
  Sex: Female

DRUGS (1)
  1. SAIZEN [Suspect]
     Active Substance: SOMATROPIN
     Indication: Growth hormone deficiency
     Route: 058
     Dates: start: 20231223

REACTIONS (2)
  - Brain neoplasm [Not Recovered/Not Resolved]
  - Recurrent cancer [Not Recovered/Not Resolved]
